FAERS Safety Report 17770078 (Version 1)
Quarter: 2020Q2

REPORT INFORMATION
  Report Type: Spontaneous
  Country: US (occurrence: US)
  Receive Date: 20200511
  Receipt Date: 20200511
  Transmission Date: 20200714
  Serious: No
  Sender: FDA-Public Use
  Company Number: None

PATIENT
  Age: 43 Year
  Sex: Female

DRUGS (1)
  1. ORENCIA [Suspect]
     Active Substance: ABATACEPT
     Dosage: ?          OTHER DOSE:125;OTHER FREQUENCY:OTHER;?
     Route: 058
     Dates: start: 201805

REACTIONS (7)
  - Hemiplegic migraine [None]
  - Headache [None]
  - Extrasystoles [None]
  - Fatigue [None]
  - Heart rate increased [None]
  - Stomatitis [None]
  - Blood pressure diastolic increased [None]

NARRATIVE: CASE EVENT DATE: 20191101
